FAERS Safety Report 13682879 (Version 1)
Quarter: 2017Q2

REPORT INFORMATION
  Report Type: Spontaneous
  Country: US (occurrence: US)
  Receive Date: 20170623
  Receipt Date: 20170623
  Transmission Date: 20170830
  Serious: No
  Sender: FDA-Public Use
  Company Number: US-MALLINCKRODT-T201700559

PATIENT
  Age: 45 Year
  Sex: Female
  Weight: 84 kg

DRUGS (2)
  1. H.P. ACTHAR [Suspect]
     Active Substance: CORTICOTROPIN
     Indication: SYSTEMIC LUPUS ERYTHEMATOSUS
     Dosage: 80U/1ML TWICE A WEEK
     Route: 030
     Dates: start: 2016, end: 201701
  2. H.P. ACTHAR [Suspect]
     Active Substance: CORTICOTROPIN
     Dosage: 80U/1ML ONCE A WEEK
     Route: 030
     Dates: start: 201608, end: 201608

REACTIONS (7)
  - Drug effect decreased [Unknown]
  - Systemic lupus erythematosus [Unknown]
  - Weight increased [Unknown]
  - Drug dose omission [Unknown]
  - Feeding disorder [Unknown]
  - Arthralgia [Unknown]
  - Fatigue [Unknown]

NARRATIVE: CASE EVENT DATE: 201701
